FAERS Safety Report 22189074 (Version 2)
Quarter: 2023Q2

REPORT INFORMATION
  Report Type: Other
  Country: FR (occurrence: FR)
  Receive Date: 20230410
  Receipt Date: 20230424
  Transmission Date: 20230722
  Serious: No
  Sender: FDA-Public Use
  Company Number: FR-TOLMAR, INC.-23FR039535

PATIENT
  Age: 79 Year
  Sex: Male
  Weight: 85 kg

DRUGS (4)
  1. ELIGARD [Suspect]
     Active Substance: LEUPROLIDE ACETATE
     Indication: Prostate cancer
     Dosage: 45 MILLIGRAM, Q 6 MONTH
     Dates: start: 20220526
  2. UNSPECIFIED INGREDIENT [Suspect]
     Active Substance: UNSPECIFIED INGREDIENT
     Indication: Prostate cancer
     Dosage: UNK
  3. RADIATION THERAPY [Suspect]
     Active Substance: RADIATION THERAPY
     Indication: Prostate cancer
     Dosage: UNK
  4. UNSPECIFIED INGREDIENT [Concomitant]
     Active Substance: UNSPECIFIED INGREDIENT
     Indication: Product used for unknown indication

REACTIONS (1)
  - Medication error [Unknown]
